FAERS Safety Report 15978366 (Version 1)
Quarter: 2019Q1

REPORT INFORMATION
  Report Type: Report from Study
  Country: NL (occurrence: NL)
  Receive Date: 20190219
  Receipt Date: 20190219
  Transmission Date: 20190418
  Serious: Yes (Hospitalization, Other)
  Sender: FDA-Public Use
  Company Number: NL-BRISTOL-MYERS SQUIBB COMPANY-BMS-2018-124475

PATIENT
  Age: 48 Year
  Sex: Female

DRUGS (7)
  1. OMEPRAZOLE. [Concomitant]
     Active Substance: OMEPRAZOLE
     Indication: HYPERCHLORHYDRIA
     Dosage: 20 MG, DAILY DOSAGE
     Route: 065
  2. WARFARIN SODIUM. [Suspect]
     Active Substance: WARFARIN SODIUM
     Indication: PRODUCT USED FOR UNKNOWN INDICATION
     Dosage: UNK
     Route: 065
  3. TYSABRI [Suspect]
     Active Substance: NATALIZUMAB
     Indication: RELAPSING-REMITTING MULTIPLE SCLEROSIS
     Dosage: 300 MG (INFUSED OVER ONE HOUR), 4 WEEK
     Route: 065
     Dates: start: 20100805
  4. ACENOCOUMAROL [Concomitant]
     Active Substance: ACENOCOUMAROL
     Indication: VENOUS THROMBOSIS
     Dosage: 1 DF (DOSAGE DEPENDS ON INR), DAILY DOSAGE
     Route: 065
  5. CLONAZEPAM. [Concomitant]
     Active Substance: CLONAZEPAM
     Indication: SLEEP DISORDER
     Dosage: 1 MG, DAILY DOSAGE
     Route: 065
  6. CYMBALTA [Concomitant]
     Active Substance: DULOXETINE HYDROCHLORIDE
     Indication: NEURALGIA
     Dosage: 120 MG, DAILY DOSAGE
     Route: 065
  7. DETRUSITOL [Concomitant]
     Active Substance: TOLTERODINE TARTRATE
     Indication: NEUROGENIC BLADDER
     Dosage: 4 MG, DAILY DOSAGE
     Route: 065

REACTIONS (3)
  - Head injury [Recovered/Resolved]
  - Facial bones fracture [Unknown]
  - Fall [Recovered/Resolved]

NARRATIVE: CASE EVENT DATE: 20180904
